FAERS Safety Report 17370026 (Version 1)
Quarter: 2020Q1

REPORT INFORMATION
  Report Type: Spontaneous
  Country: FR (occurrence: FR)
  Receive Date: 20200205
  Receipt Date: 20200205
  Transmission Date: 20200409
  Serious: Yes (Death, Hospitalization)
  Sender: FDA-Public Use
  Company Number: FR-TEVA-2020-FR-1181480

PATIENT
  Age: 81 Year
  Sex: Male
  Weight: 86 kg

DRUGS (2)
  1. CARBOPLATINE [Suspect]
     Active Substance: CARBOPLATIN
     Indication: PERITONEAL MESOTHELIOMA MALIGNANT
     Dosage: 410 MG
     Route: 041
     Dates: start: 20191123, end: 20191123
  2. PEMETREXED. [Suspect]
     Active Substance: PEMETREXED
     Indication: PERITONEAL MESOTHELIOMA MALIGNANT
     Dosage: 1000 MG
     Route: 033
     Dates: start: 20191123, end: 20191123

REACTIONS (10)
  - Colitis [Fatal]
  - Acute kidney injury [Fatal]
  - Febrile bone marrow aplasia [Fatal]
  - Rash [Fatal]
  - Atrial fibrillation [Fatal]
  - Acute respiratory failure [Fatal]
  - Thrombocytopenia [Fatal]
  - Mucosal inflammation [Fatal]
  - Diarrhoea [Fatal]
  - Anaemia [Fatal]

NARRATIVE: CASE EVENT DATE: 20191202
